FAERS Safety Report 4958679-1 (Version None)
Quarter: 2006Q1

REPORT INFORMATION
  Report Type: 
  Country: None (occurrence: None)
  Receive Date: 20060330
  Receipt Date: 20051025
  Transmission Date: 20060701
  Serious: Yes (Hospitalization)
  Sender: FDA-Public Use
  Company Number: US-MERCK-0510USA09200

PATIENT
  Sex: Female
  Weight: 80 kg

DRUGS (3)
  1. VIOXX [Suspect]
     Indication: ARTHRITIS
     Route: 048
     Dates: start: 19990101, end: 20010901
  2. VIOXX [Suspect]
     Route: 048
     Dates: start: 19990101, end: 20010901
  3. TYLENOL (CAPLET) [Concomitant]
     Route: 065

REACTIONS (6)
  - CARDIOVASCULAR DISORDER [None]
  - CEREBROVASCULAR ACCIDENT [None]
  - FOOT OPERATION [None]
  - MYOCARDIAL INFARCTION [None]
  - POLYTRAUMATISM [None]
  - PULMONARY EMBOLISM [None]
